FAERS Safety Report 12803875 (Version 1)
Quarter: 2016Q4

REPORT INFORMATION
  Report Type: Spontaneous
  Country: US (occurrence: US)
  Receive Date: 20161003
  Receipt Date: 20161003
  Transmission Date: 20170207
  Serious: No
  Sender: FDA-Public Use
  Company Number: US-BAYER-2016-184271

PATIENT
  Age: 81 Year
  Sex: Male
  Weight: 95.24 kg

DRUGS (10)
  1. VITAMIIN C [Concomitant]
     Active Substance: ASCORBIC ACID
  2. DAILY VITAMINS [Concomitant]
     Dosage: UNK
  3. MIRALAX [Suspect]
     Active Substance: POLYETHYLENE GLYCOL 3350
     Indication: GASTROINTESTINAL DISORDER
     Dosage: 1-2 DOSAGE FORM
     Route: 048
     Dates: start: 2016, end: 20160920
  4. OMEGA-3 ACIDS [Concomitant]
     Active Substance: OMEGA-3 FATTY ACIDS
  5. AMLODIPINE [Concomitant]
     Active Substance: AMLODIPINE BESYLATE
  6. LISINOPRIL. [Concomitant]
     Active Substance: LISINOPRIL
  7. HYDROCODONE [Concomitant]
     Active Substance: HYDROCODONE
  8. MINERAL [Concomitant]
  9. MIRALAX [Suspect]
     Active Substance: POLYETHYLENE GLYCOL 3350
     Indication: GASTROINTESTINAL DISORDER
     Dosage: 3 DF, UNK
     Route: 048
     Dates: start: 20160921
  10. CASCARA SAGRADA [Concomitant]
     Active Substance: FRANGULA PURSHIANA BARK

REACTIONS (4)
  - Circumstance or information capable of leading to medication error [None]
  - Product use issue [None]
  - Expired product administered [None]
  - Product use issue [None]

NARRATIVE: CASE EVENT DATE: 20160920
